FAERS Safety Report 7170669-X (Version None)
Quarter: 2010Q4

REPORT INFORMATION
  Report Type: 
  Country: None (occurrence: None)
  Receive Date: 20101217
  Receipt Date: 20101213
  Transmission Date: 20110411
  Serious: Yes (Hospitalization)
  Sender: FDA-Public Use
  Company Number: D0069701A

PATIENT
  Sex: Female

DRUGS (1)
  1. ARIXTRA [Suspect]
     Indication: INTERVERTEBRAL DISC OPERATION
     Route: 058
     Dates: start: 20101201

REACTIONS (1)
  - HYPERSENSITIVITY [None]
